FAERS Safety Report 15067207 (Version 1)
Quarter: 2018Q2

REPORT INFORMATION
  Report Type: Spontaneous
  Country: US (occurrence: US)
  Receive Date: 20180626
  Receipt Date: 20180626
  Transmission Date: 20180711
  Serious: Yes (Other)
  Sender: FDA-Public Use
  Company Number: US-COOPERSURGICAL, INC.-US-2018CPS032262

PATIENT

DRUGS (2)
  1. PARAGARD T 380A [Suspect]
     Active Substance: COPPER
     Indication: PRODUCT USED FOR UNKNOWN INDICATION
     Dosage: UNK
     Route: 015
     Dates: start: 2007, end: 201805
  2. ESTRADIOL/NORETHINDRONE [Concomitant]
     Active Substance: ESTRADIOL\NORETHINDRONE
     Indication: MENOPAUSAL SYMPTOMS
     Dosage: UNK

REACTIONS (5)
  - Device breakage [Recovered/Resolved]
  - Embedded device [Not Recovered/Not Resolved]
  - Complication of device removal [Unknown]
  - Device use issue [Recovered/Resolved]
  - Foreign body in urogenital tract [Not Recovered/Not Resolved]

NARRATIVE: CASE EVENT DATE: 201805
